FAERS Safety Report 8980544 (Version 1)
Quarter: 2012Q4

REPORT INFORMATION
  Report Type: 
  Country: GB (occurrence: GB)
  Receive Date: 20121221
  Receipt Date: 20121221
  Transmission Date: 20130627
  Serious: Yes (Hospitalization, Other)
  Sender: FDA-Public Use
  Company Number: GB-JNJFOC-20121208688

PATIENT
  Age: 77 Year
  Sex: Female
  Weight: 74 kg

DRUGS (6)
  1. XARELTO [Suspect]
     Indication: KNEE ARTHROPLASTY
     Route: 048
     Dates: start: 20121001, end: 20121017
  2. XARELTO [Suspect]
     Indication: THROMBOSIS PROPHYLAXIS
     Route: 048
     Dates: start: 20121001, end: 20121017
  3. ASPIRIN [Concomitant]
     Route: 065
     Dates: start: 20030919
  4. SIMVASTATIN [Concomitant]
     Route: 048
     Dates: start: 20040330
  5. ENALAPRIL [Concomitant]
     Route: 065
     Dates: start: 20120612
  6. BENDROFLUAZIDE [Concomitant]
     Route: 048
     Dates: start: 20040730

REACTIONS (4)
  - Hypokalaemia [Recovered/Resolved]
  - Nausea [Recovered/Resolved]
  - Hypotension [Recovered/Resolved]
  - Hyponatraemia [Recovered/Resolved]
